FAERS Safety Report 6040589-2 (Version None)
Quarter: 2009Q1

REPORT INFORMATION
  Report Type: 
  Country: None (occurrence: None)
  Receive Date: 20090116
  Receipt Date: 20080409
  Transmission Date: 20090719
  Serious: No
  Sender: FDA-Public Use
  Company Number: US-BRISTOL-MYERS SQUIBB COMPANY-14147045

PATIENT
  Age: 33 Year
  Sex: Female

DRUGS (2)
  1. ABILIFY [Suspect]
     Dosage: BEGAN MAR07,DECREASED 20MG JUN07,DECREASED 15MG ON JUL07,DECREASED 10MG ON AUG07,DISCONTINUED NOV07
     Dates: start: 20070301, end: 20071101
  2. LAMICTAL [Concomitant]
     Dates: start: 20070501, end: 20070801

REACTIONS (1)
  - BLOOD TRIGLYCERIDES INCREASED [None]
